FAERS Safety Report 21888345 (Version 1)
Quarter: 2023Q1

REPORT INFORMATION
  Report Type: Spontaneous
  Country: BE (occurrence: BE)
  Receive Date: 20230120
  Receipt Date: 20230120
  Transmission Date: 20230417
  Serious: Yes (Hospitalization)
  Sender: FDA-Public Use
  Company Number: None

PATIENT
  Age: 69 Year
  Sex: Female
  Weight: 68.2 kg

DRUGS (11)
  1. CARBOPLATIN [Suspect]
     Active Substance: CARBOPLATIN
     Dosage: UNK
     Dates: end: 20221118
  2. FURADANTIN [Concomitant]
     Active Substance: NITROFURANTOIN
     Dosage: 100 MG, 3X/DAY FOR 5 DAYS
  3. MOVICOL [Concomitant]
     Active Substance: POLYETHYLENE GLYCOL 3350\POTASSIUM CHLORIDE\SODIUM BICARBONATE\SODIUM CHLORIDE
     Dosage: 1 SACHET EVERY 12 HOURS IN CASE OF CONSTIPATION
  4. ZANTAC [Concomitant]
     Active Substance: RANITIDINE HYDROCHLORIDE
     Dosage: 300 MG, 1X/DAY
  5. IBUPROFEN [Concomitant]
     Active Substance: IBUPROFEN
     Dosage: 900 MG, 1X/DAY
  6. PRIMPERAN [Concomitant]
     Active Substance: METOCLOPRAMIDE HYDROCHLORIDE
     Dosage: EVERY 8 HOURS 1 TABLET IN CASE OF NAUSEA
  7. ACETAMINOPHEN [Concomitant]
     Active Substance: ACETAMINOPHEN
     Dosage: 4 G, 1X/DAY
  8. DICLOFENAC MYLAN [DICLOFENAC SODIUM] [Concomitant]
     Dosage: 150 MG, 1X/DAY 12H AND 6H BEFORE CHEMOTHERAPY
  9. DEXAMETHASONE [Concomitant]
     Active Substance: DEXAMETHASONE
     Dosage: 20 G 12H AND 6H BEFORE CHEMOTHERAPY
  10. TRAMADOL HYDROCHLORIDE [Concomitant]
     Active Substance: TRAMADOL HYDROCHLORIDE
     Dosage: 50 MG EVERY 6 HOURS SUBLINGUAL TABLET
  11. MOTILIUM [Concomitant]
     Active Substance: DOMPERIDONE
     Dosage: IF INSUFFICIENT EFFECT OF PRIMPERAN AGAINST NAUSEA

REACTIONS (3)
  - Nausea [Recovered/Resolved]
  - Throat irritation [Recovered/Resolved]
  - Pharyngeal swelling [Recovered/Resolved]

NARRATIVE: CASE EVENT DATE: 20221118
